FAERS Safety Report 7167879-4 (Version None)
Quarter: 2010Q4

REPORT INFORMATION
  Report Type: 
  Country: None (occurrence: None)
  Receive Date: 20101216
  Receipt Date: 20101207
  Transmission Date: 20110411
  Serious: Yes (Hospitalization, Other)
  Sender: FDA-Public Use
  Company Number: US-ELI_LILLY_AND_COMPANY-US200706000605

PATIENT
  Sex: Female
  Weight: 94.331 kg

DRUGS (13)
  1. HUMATROPE [Suspect]
     Indication: HYPOPITUITARISM
     Dosage: 0.3 MG, DAILY (1/D)
     Dates: start: 19980501, end: 20090601
  2. PROZAC [Suspect]
     Indication: DEPRESSION
     Dosage: UNK, UNKNOWN
     Dates: start: 19970601, end: 19970801
  3. PRILOSEC [Concomitant]
     Indication: GASTRIC DISORDER
     Dosage: 20 MG, DAILY (1/D)
  4. LEVOXYL [Concomitant]
     Indication: THYROID DISORDER
  5. PREMARIN [Concomitant]
     Indication: HORMONE REPLACEMENT THERAPY
     Dosage: 0.625 MG, DAILY (1/D)
  6. CLIMARA [Concomitant]
     Indication: HORMONE REPLACEMENT THERAPY
     Dosage: 0.1 MG, DAILY (1/D)
  7. MULTI-VITAMIN [Concomitant]
     Indication: SUPPLEMENTATION THERAPY
     Dosage: UNK, DAILY (1/D)
  8. CALCIUM W/VITAMIN D NOS [Concomitant]
     Indication: SUPPLEMENTATION THERAPY
     Dosage: 500 MG, DAILY (1/D)
  9. FIBERCON [Concomitant]
     Indication: SUPPLEMENTATION THERAPY
     Dosage: 200 MG, DAILY (1/D)
  10. OXYGEN [Concomitant]
  11. SPIRIVA [Concomitant]
  12. PROAIR HFA [Concomitant]
  13. ASMANEX TWISTHALER [Concomitant]

REACTIONS (24)
  - ADRENAL DISORDER [None]
  - ANXIETY [None]
  - ASPIRATION [None]
  - ASTHMA [None]
  - CHRONIC OBSTRUCTIVE PULMONARY DISEASE [None]
  - DECREASED APPETITE [None]
  - DEPRESSION [None]
  - DRUG INEFFECTIVE [None]
  - DYSPNOEA [None]
  - FATIGUE [None]
  - FRUSTRATION [None]
  - GAIT DISTURBANCE [None]
  - HYPERTENSION [None]
  - HYPOKINESIA [None]
  - HYPOTHYROIDISM [None]
  - MEMORY IMPAIRMENT [None]
  - NASAL CONGESTION [None]
  - OXYGEN SATURATION DECREASED [None]
  - POLYP COLORECTAL [None]
  - SENSATION OF FOREIGN BODY [None]
  - SOMNOLENCE [None]
  - STRESS [None]
  - UNRESPONSIVE TO STIMULI [None]
  - WEIGHT DECREASED [None]
